FAERS Safety Report 8987667 (Version 2)
Quarter: 2013Q1

REPORT INFORMATION
  Report Type: Spontaneous
  Country: US (occurrence: US)
  Receive Date: 20121227
  Receipt Date: 20130115
  Transmission Date: 20140127
  Serious: Yes (Death, Hospitalization)
  Sender: FDA-Public Use
  Company Number: US-ACTELION-A-NJ2012-76742

PATIENT
  Age: 84 Year
  Sex: Male

DRUGS (2)
  1. TRACLEER [Suspect]
     Indication: PULMONARY ARTERIAL HYPERTENSION
     Dosage: UNK
     Route: 048
     Dates: start: 20121211, end: 20121216
  2. TRACLEER [Suspect]
     Dosage: 125 MG, BID
     Route: 048
     Dates: end: 20121208

REACTIONS (1)
  - Death [Fatal]
